FAERS Safety Report 7779517-8 (Version None)
Quarter: 2011Q3

REPORT INFORMATION
  Report Type: 
  Country: None (occurrence: None)
  Receive Date: 20110927
  Receipt Date: 20110920
  Transmission Date: 20111222
  Serious: Yes (Death)
  Sender: FDA-Public Use
  Company Number: DE-SHIRE-SPV1-2011-01159

PATIENT
  Sex: Male
  Weight: 63 kg

DRUGS (3)
  1. RAMIPRIL [Concomitant]
     Indication: PRODUCT USED FOR UNKNOWN INDICATION
     Dosage: 1 DF, 1X/DAY:QD
     Route: 065
     Dates: start: 20090101
  2. ELAPRASE [Suspect]
     Indication: MUCOPOLYSACCHARIDOSIS II
     Dosage: 36 MG, UNKNOWN
     Route: 065
     Dates: start: 20070510, end: 20110812
  3. ATMADISC [Concomitant]
     Indication: CHRONIC OBSTRUCTIVE PULMONARY DISEASE
     Dosage: UNK UNK, UNKNOWN
     Route: 055
     Dates: start: 20090101

REACTIONS (1)
  - DEATH [None]
